FAERS Safety Report 10786435 (Version 1)
Quarter: 2015Q1

REPORT INFORMATION
  Report Type: Other
  Country: US (occurrence: US)
  Receive Date: 20150211
  Receipt Date: 20150211
  Transmission Date: 20150721
  Serious: Yes (Death)
  Sender: FDA-Public Use
  Company Number: US-FRI-1000074424

PATIENT
  Age: 33 Year
  Sex: Female

DRUGS (5)
  1. HEROIN [Suspect]
     Active Substance: DIACETYLMORPHINE
  2. ALPRAZOLAM. [Suspect]
     Active Substance: ALPRAZOLAM
  3. METHADONE [Suspect]
     Active Substance: METHADONE HYDROCHLORIDE
  4. BETA BLOCKER [Suspect]
     Active Substance: UNSPECIFIED INGREDIENT
  5. CITALOPRAM [Suspect]
     Active Substance: CITALOPRAM HYDROBROMIDE

REACTIONS (2)
  - Cardio-respiratory arrest [Fatal]
  - Death [Fatal]
